FAERS Safety Report 22263569 (Version 1)
Quarter: 2023Q2

REPORT INFORMATION
  Report Type: Spontaneous
  Country: TW (occurrence: TW)
  Receive Date: 20230428
  Receipt Date: 20230428
  Transmission Date: 20230722
  Serious: Yes (Other)
  Sender: FDA-Public Use
  Company Number: TW-RK PHARMA, INC-20230400023

PATIENT

DRUGS (2)
  1. MITOMYCIN [Suspect]
     Active Substance: MITOMYCIN
     Indication: Glaucoma
     Dosage: 0.1 MILLILITER  0.03%
     Route: 031
  2. MITOMYCIN [Suspect]
     Active Substance: MITOMYCIN
     Dosage: 0.1 MILLILITER  0.02%
     Route: 031

REACTIONS (1)
  - Necrotising retinitis [Recovering/Resolving]
